FAERS Safety Report 7863093-5 (Version None)
Quarter: 2011Q4

REPORT INFORMATION
  Report Type: 
  Country: None (occurrence: None)
  Receive Date: 20111027
  Receipt Date: 20101124
  Transmission Date: 20120403
  Serious: Yes (Other)
  Sender: FDA-Public Use
  Company Number: US-AMGEN-USASP2010005029

PATIENT
  Age: 40 Year
  Sex: Male

DRUGS (2)
  1. REMICADE [Concomitant]
     Indication: RHEUMATOID ARTHRITIS
  2. ENBREL [Suspect]
     Indication: RHEUMATOID ARTHRITIS
     Dates: start: 20051123, end: 20101103

REACTIONS (9)
  - THERAPEUTIC RESPONSE DECREASED [None]
  - ORAL PAIN [None]
  - ARTHRALGIA [None]
  - JOINT SWELLING [None]
  - CERUMEN IMPACTION [None]
  - BACK PAIN [None]
  - PHARYNGITIS STREPTOCOCCAL [None]
  - PAIN IN EXTREMITY [None]
  - MUSCULOSKELETAL PAIN [None]
